FAERS Safety Report 23657649 (Version 1)
Quarter: 2024Q1

REPORT INFORMATION
  Report Type: Spontaneous
  Country: US (occurrence: None)
  Receive Date: 20240320
  Receipt Date: 20240320
  Transmission Date: 20240410
  Serious: Yes (Hospitalization, Disabling, Other)
  Sender: FDA-Public Use
  Company Number: None

PATIENT
  Age: 50 Year
  Sex: Female
  Weight: 69.75 kg

DRUGS (11)
  1. LEVOFLOXACIN [Suspect]
     Active Substance: LEVOFLOXACIN
     Indication: Sinusitis
     Dates: start: 20221001, end: 20230420
  2. PREDNISONE [Suspect]
     Active Substance: PREDNISONE
  3. GABAPENTIN [Concomitant]
     Active Substance: GABAPENTIN
  4. dufloxetine [Concomitant]
  5. TYLENOL [Concomitant]
     Active Substance: ACETAMINOPHEN
  6. TRAZODONE [Concomitant]
     Active Substance: TRAZODONE HYDROCHLORIDE
  7. MAGNESIUM [Concomitant]
     Active Substance: MAGNESIUM
  8. ALPHA LIPOIC ACID [Concomitant]
     Active Substance: .ALPHA.-LIPOIC ACID
  9. PPQ [Concomitant]
  10. ALLEGRA [Concomitant]
     Active Substance: FEXOFENADINE HYDROCHLORIDE
  11. COLLAGEN [Concomitant]
     Active Substance: COLLAGEN

REACTIONS (11)
  - Product communication issue [None]
  - Tendon rupture [None]
  - Ligament rupture [None]
  - Tendon rupture [None]
  - Neuropathy peripheral [None]
  - Myalgia [None]
  - Tendonitis [None]
  - Fatigue [None]
  - Palpitations [None]
  - Impaired work ability [None]
  - Quality of life decreased [None]

NARRATIVE: CASE EVENT DATE: 20230430
